FAERS Safety Report 13377621 (Version 1)
Quarter: 2017Q1

REPORT INFORMATION
  Report Type: Spontaneous
  Country: US (occurrence: US)
  Receive Date: 20170328
  Receipt Date: 20170328
  Transmission Date: 20170429
  Serious: Yes (Other)
  Sender: FDA-Public Use
  Company Number: US-BAYER-2017-054470

PATIENT
  Age: 10 Year
  Sex: Female

DRUGS (6)
  1. L-ARGININE HCL [Concomitant]
  2. DEXAMETHASON [DEXAMETHASONE] [Concomitant]
  3. RIBOFLAVIN [Concomitant]
     Active Substance: RIBOFLAVIN
  4. COENZYME Q10 [Concomitant]
     Active Substance: UBIDECARENONE
  5. ACETYLSALICYLIC ACID({=100 MG) [Suspect]
     Active Substance: ASPIRIN
     Indication: MELAS SYNDROME
     Dosage: UNK UNK, QD
  6. DEXAMETHASONE. [Concomitant]
     Active Substance: DEXAMETHASONE

REACTIONS (2)
  - MELAS syndrome [None]
  - Off label use [None]
